FAERS Safety Report 26040096 (Version 2)
Quarter: 2025Q4

REPORT INFORMATION
  Report Type: Other
  Country: EU (occurrence: EU)
  Receive Date: 20251113
  Receipt Date: 20251203
  Transmission Date: 20260117
  Serious: Yes (Hospitalization, Other)
  Sender: ALVOGEN
  Company Number: EU-ALVOGEN-2025099003

PATIENT
  Age: 64 Year
  Sex: Female

DRUGS (11)
  1. OSELTAMIVIR [Suspect]
     Active Substance: OSELTAMIVIR
     Indication: Influenza
     Dosage: FOR 5 DAYS
  2. WARFARIN [Suspect]
     Active Substance: WARFARIN
     Indication: Atrial fibrillation
  3. WARFARIN [Suspect]
     Active Substance: WARFARIN
     Indication: Atrial fibrillation
  4. FUROSEMIDE [Concomitant]
     Active Substance: FUROSEMIDE
     Indication: Aortic valve disease
  5. BISOPROLOL [Concomitant]
     Active Substance: BISOPROLOL
     Indication: Aortic valve disease
  6. SPIRONOLACTONE [Concomitant]
     Active Substance: SPIRONOLACTONE
     Indication: Aortic valve disease
  7. DAPAGLIFLOZIN [Concomitant]
     Active Substance: DAPAGLIFLOZIN
     Indication: Aortic valve disease
  8. LEVOTHYROXINE [Concomitant]
     Active Substance: LEVOTHYROXINE
     Indication: Hypothyroidism
  9. TERBUTALINE [Concomitant]
     Active Substance: TERBUTALINE
     Indication: Chronic respiratory failure
  10. FLUTICASONE [Concomitant]
     Active Substance: FLUTICASONE
     Indication: Chronic respiratory failure
  11. SALMETEROL [Concomitant]
     Active Substance: SALMETEROL
     Indication: Chronic respiratory failure

REACTIONS (3)
  - Drug interaction [Unknown]
  - Melaena [Unknown]
  - Gastrointestinal haemorrhage [Unknown]
